FAERS Safety Report 5022685-1 (Version None)
Quarter: 2006Q2

REPORT INFORMATION
  Report Type: 
  Country: None (occurrence: None)
  Receive Date: 20060605
  Receipt Date: 20060519
  Transmission Date: 20061013
  Serious: Yes (Death)
  Sender: FDA-Public Use
  Company Number: GB200603006756

PATIENT
  Sex: 0
  Weight: 3.7 kg

DRUGS (1)
  1. STRATTERA [Suspect]
     Dosage: TRANSPLACENTAL
     Route: 064
     Dates: start: 20050708, end: 20050729

REACTIONS (4)
  - DRUG EXPOSURE DURING PREGNANCY [None]
  - INTRA-UTERINE DEATH [None]
  - LABOUR COMPLICATION [None]
  - STILLBIRTH [None]
